FAERS Safety Report 18337413 (Version 1)
Quarter: 2020Q4

REPORT INFORMATION
  Report Type: Spontaneous
  Country: FR (occurrence: FR)
  Receive Date: 20201002
  Receipt Date: 20201002
  Transmission Date: 20210113
  Serious: Yes (Other)
  Sender: FDA-Public Use
  Company Number: FR-AMGEN-FRASP2020157490

PATIENT
  Age: 52 Year
  Sex: Male
  Weight: 72 kg

DRUGS (3)
  1. KYPROLIS [Suspect]
     Active Substance: CARFILZOMIB
     Indication: PLASMA CELL MYELOMA
     Dosage: 104 MILLIGRAM
     Route: 042
     Dates: start: 20190225, end: 20200302
  2. ZOMETA [Concomitant]
     Active Substance: ZOLEDRONIC ACID
     Indication: PLASMA CELL MYELOMA
     Dosage: 4 MILLIGRAM, CYCLICAL
     Route: 042
     Dates: start: 20180504
  3. DEXAMETHASONE. [Concomitant]
     Active Substance: DEXAMETHASONE
     Indication: PLASMA CELL MYELOMA
     Dosage: 20 MILLIGRAM, J1 J2 J8 J9 J15 J16
     Route: 042
     Dates: start: 20160425

REACTIONS (3)
  - Bundle branch block left [Not Recovered/Not Resolved]
  - Left ventricular dysfunction [Recovered/Resolved]
  - Hypertension [Recovered/Resolved]

NARRATIVE: CASE EVENT DATE: 20190622
